FAERS Safety Report 9281114 (Version 2)
Quarter: 2013Q2

REPORT INFORMATION
  Report Type: Spontaneous
  Country: ZA (occurrence: ZA)
  Receive Date: 20130509
  Receipt Date: 20130529
  Transmission Date: 20140414
  Serious: Yes (Hospitalization)
  Sender: FDA-Public Use
  Company Number: ZA-ASTRAZENECA-2013SE30711

PATIENT
  Age: 40 Year
  Sex: Male

DRUGS (5)
  1. CRESTOR [Suspect]
     Route: 048
     Dates: start: 201204, end: 201207
  2. CRESTOR [Suspect]
     Route: 048
     Dates: start: 201207
  3. CRESTOR [Suspect]
     Route: 048
     Dates: start: 201301, end: 201302
  4. CRESTOR [Suspect]
     Route: 048
     Dates: start: 201303
  5. NEXIAM [Concomitant]
     Indication: GASTROOESOPHAGEAL REFLUX DISEASE
     Route: 048
     Dates: start: 201301

REACTIONS (3)
  - Gastrooesophageal reflux disease [Recovered/Resolved]
  - Arthralgia [Not Recovered/Not Resolved]
  - Pain in extremity [Recovered/Resolved]
